FAERS Safety Report 23941657 (Version 1)
Quarter: 2024Q2

REPORT INFORMATION
  Report Type: Spontaneous
  Country: US (occurrence: None)
  Receive Date: 20240604
  Receipt Date: 20240604
  Transmission Date: 20240716
  Serious: Yes (Disabling, Other)
  Sender: FDA-Public Use
  Company Number: None

PATIENT
  Age: 19 Year
  Sex: Male

DRUGS (1)
  1. DUPIXENT [Suspect]
     Active Substance: DUPILUMAB
     Indication: Eczema

REACTIONS (6)
  - Rash [None]
  - Vision blurred [None]
  - Erythema [None]
  - Skin exfoliation [None]
  - Eczema [None]
  - Erythema [None]

NARRATIVE: CASE EVENT DATE: 20230330
